FAERS Safety Report 7820160-X (Version None)
Quarter: 2011Q4

REPORT INFORMATION
  Report Type: 
  Country: None (occurrence: None)
  Receive Date: 20111018
  Receipt Date: 20111004
  Transmission Date: 20120403
  Serious: Yes (Other)
  Sender: FDA-Public Use
  Company Number: PHHY2011BR88488

PATIENT
  Age: 64 Year
  Sex: Male
  Weight: 90.5 kg

DRUGS (1)
  1. EXFORGE HCT [Suspect]
     Indication: HYPERTENSION
     Dosage: QD

REACTIONS (7)
  - LOW DENSITY LIPOPROTEIN INCREASED [None]
  - WEIGHT INCREASED [None]
  - HEART RATE INCREASED [None]
  - WAIST CIRCUMFERENCE INCREASED [None]
  - BLOOD PRESSURE SYSTOLIC INCREASED [None]
  - BODY MASS INDEX INCREASED [None]
  - TREATMENT NONCOMPLIANCE [None]
